FAERS Safety Report 7036080-7 (Version None)
Quarter: 2010Q4

REPORT INFORMATION
  Report Type: 
  Country: None (occurrence: None)
  Receive Date: 20101007
  Receipt Date: 20101007
  Transmission Date: 20110411
  Serious: Yes (Other)
  Sender: FDA-Public Use
  Company Number: None

PATIENT
  Age: 68 Year
  Sex: Male
  Weight: 127.0072 kg

DRUGS (1)
  1. AMOXICILLIN [Suspect]
     Indication: ORAL SURGERY
     Dosage: 1 CAPSULE 3 TIMES FOR 5 DAYS PO
     Route: 048
     Dates: start: 20100913, end: 20100918

REACTIONS (11)
  - ABDOMINAL PAIN UPPER [None]
  - BRADYPHRENIA [None]
  - CHROMATURIA [None]
  - CONFUSIONAL STATE [None]
  - DECREASED APPETITE [None]
  - DIARRHOEA [None]
  - DRUG TOXICITY [None]
  - FALL [None]
  - MUSCULAR WEAKNESS [None]
  - PAIN [None]
  - SPEECH DISORDER [None]
